FAERS Safety Report 6022081-4 (Version None)
Quarter: 2008Q4

REPORT INFORMATION
  Report Type: 
  Country: None (occurrence: None)
  Receive Date: 20081223
  Receipt Date: 20081215
  Transmission Date: 20090506
  Serious: Yes (Hospitalization)
  Sender: FDA-Public Use
  Company Number: 235950K07USA

PATIENT
  Age: 52 Year
  Sex: Female

DRUGS (7)
  1. REBIF [Suspect]
     Indication: MULTIPLE SCLEROSIS
     Dosage: 44 MCG, 3 IN 1 WEEKS, SUBCUTANEOUS;  22 MCG, 3 IN 1 WEEKS, SUBCUTANEOUS
     Route: 058
     Dates: start: 20040625, end: 20061101
  2. REBIF [Suspect]
     Indication: MULTIPLE SCLEROSIS
     Dosage: 44 MCG, 3 IN 1 WEEKS, SUBCUTANEOUS;  22 MCG, 3 IN 1 WEEKS, SUBCUTANEOUS
     Route: 058
     Dates: start: 20070115, end: 20070101
  3. REBIF [Suspect]
     Indication: MULTIPLE SCLEROSIS
     Dosage: 44 MCG, 3 IN 1 WEEKS, SUBCUTANEOUS;  22 MCG, 3 IN 1 WEEKS, SUBCUTANEOUS
     Route: 058
     Dates: start: 20070101
  4. BENICAR [Concomitant]
  5. TRIAMTERENE (TRIAMTERENE) [Concomitant]
  6. HYDROCHLOROTHIAZIDE [Concomitant]
  7. TYLENOL ARTHRITIS (PARACETAMOL) [Concomitant]

REACTIONS (7)
  - GRAND MAL CONVULSION [None]
  - HEPATIC ENZYME INCREASED [None]
  - INTERVERTEBRAL DISC DISORDER [None]
  - PHARYNGEAL HAEMATOMA [None]
  - POST PROCEDURAL HAEMORRHAGE [None]
  - REVERSIBLE POSTERIOR LEUKOENCEPHALOPATHY SYNDROME [None]
  - THROMBOSIS [None]
